FAERS Safety Report 14132612 (Version 3)
Quarter: 2018Q2

REPORT INFORMATION
  Report Type: Report from Study
  Country: CO (occurrence: CO)
  Receive Date: 20171027
  Receipt Date: 20180411
  Transmission Date: 20180711
  Serious: Yes (Other)
  Sender: FDA-Public Use
  Company Number: CO-EMD SERONO-E2B_80070246

PATIENT
  Age: 4 Year
  Sex: Female

DRUGS (1)
  1. SAIZEN [Suspect]
     Active Substance: SOMATROPIN
     Indication: SMALL FOR DATES BABY
     Route: 058
     Dates: start: 20160708, end: 20161211

REACTIONS (3)
  - Abdominal pain [Recovered/Resolved]
  - Breast enlargement [Recovered/Resolved]
  - Vaginal haemorrhage [Recovered/Resolved]

NARRATIVE: CASE EVENT DATE: 20161211
